FAERS Safety Report 8283823-0 (Version None)
Quarter: 2012Q2

REPORT INFORMATION
  Report Type: 
  Country: None (occurrence: None)
  Receive Date: 20120413
  Receipt Date: 20111027
  Transmission Date: 20120825
  Serious: No
  Sender: FDA-Public Use
  Company Number: US-ASTRAZENECA-2011SE55842

PATIENT
  Age: 88 Year
  Sex: Female
  Weight: 56.7 kg

DRUGS (9)
  1. MEDICATION FOR THYROID [Concomitant]
  2. NEXIUM [Suspect]
     Indication: DYSPEPSIA
     Route: 048
  3. ASCORBIC ACID [Concomitant]
  4. XYALATAN [Concomitant]
     Indication: GLAUCOMA
  5. LUNESTA [Concomitant]
  6. COUMADIN [Concomitant]
  7. NEXIUM [Suspect]
     Indication: GASTROOESOPHAGEAL REFLUX DISEASE
     Route: 048
  8. NEXIUM [Suspect]
     Indication: ULCER
     Route: 048
  9. HIGH BLOOD PRESSURE MEDICATIONS [Concomitant]

REACTIONS (2)
  - IRRITABLE BOWEL SYNDROME [None]
  - ABDOMINAL DISCOMFORT [None]
